FAERS Safety Report 4759932-7 (Version None)
Quarter: 2005Q3

REPORT INFORMATION
  Report Type: 
  Country: None (occurrence: None)
  Receive Date: 20050902
  Receipt Date: 20041224
  Transmission Date: 20060218
  Serious: Yes (Hospitalization)
  Sender: FDA-Public Use
  Company Number: JP-ABBOTT-04P-087-0284789-00

PATIENT
  Sex: Male

DRUGS (35)
  1. KALETRA [Suspect]
     Indication: HIV INFECTION
     Route: 048
     Dates: start: 20040206, end: 20040220
  2. KALETRA [Suspect]
     Route: 048
     Dates: start: 20030912, end: 20031106
  3. KALETRA [Suspect]
     Route: 048
     Dates: start: 20040221, end: 20040408
  4. CLARITHROMYCIN [Suspect]
     Indication: MYCOBACTERIUM AVIUM COMPLEX INFECTION
     Route: 048
     Dates: start: 20030401, end: 20031114
  5. CLARITHROMYCIN [Suspect]
     Route: 048
     Dates: start: 20031124, end: 20040408
  6. LAMIVUDINE [Suspect]
     Indication: HIV INFECTION
     Route: 048
     Dates: start: 20031203, end: 20040123
  7. LAMIVUDINE [Suspect]
     Route: 048
     Dates: start: 20030401, end: 20031114
  8. LAMIVUDINE [Suspect]
     Route: 048
     Dates: start: 20040221, end: 20040408
  9. LAMIVUDINE [Suspect]
     Route: 048
     Dates: start: 20040409
  10. STAVUDINE [Suspect]
     Indication: HIV INFECTION
     Route: 048
     Dates: start: 20030401, end: 20031114
  11. NELFINAVIR [Suspect]
     Indication: HIV INFECTION
     Route: 048
     Dates: start: 20030401, end: 20030911
  12. NELFINAVIR [Suspect]
     Route: 048
     Dates: start: 20031107, end: 20031114
  13. NEVIRAPINE [Suspect]
     Indication: HIV INFECTION
     Route: 048
     Dates: start: 20040206, end: 20040220
  14. TENOFOVIR [Concomitant]
     Indication: HIV INFECTION
     Route: 048
     Dates: start: 20031203, end: 20040123
  15. TENOFOVIR [Concomitant]
     Route: 048
     Dates: start: 20040221
  16. BACTRIM [Concomitant]
     Indication: PNEUMOCYSTIS JIROVECI PNEUMONIA
     Route: 048
     Dates: start: 20030401
  17. ETHANBUTOL [Concomitant]
     Indication: ATYPICAL MYCOBACTERIAL LYMPHADENITIS
     Route: 048
     Dates: start: 20030401, end: 20031114
  18. ETHANBUTOL [Concomitant]
     Route: 048
     Dates: start: 20031124
  19. CIPROFLOXACIN [Concomitant]
     Indication: ATYPICAL MYCOBACTERIAL LYMPHADENITIS
     Route: 048
     Dates: start: 20030401, end: 20030718
  20. RIFABUTIN [Concomitant]
     Indication: ATYPICAL MYCOBACTERIAL LYMPHADENITIS
     Route: 048
     Dates: start: 20030401, end: 20030513
  21. RIFABUTIN [Concomitant]
     Route: 048
     Dates: start: 20030523, end: 20030911
  22. RIFABUTIN [Concomitant]
     Route: 048
     Dates: start: 20030912, end: 20031114
  23. RIFABUTIN [Concomitant]
     Route: 048
     Dates: start: 20031124, end: 20040108
  24. RIFABUTIN [Concomitant]
     Route: 048
     Dates: start: 20040109, end: 20040204
  25. RIFABUTIN [Concomitant]
     Route: 048
     Dates: start: 20040205
  26. LOPERAMIDE [Concomitant]
     Indication: PROPHYLAXIS
     Route: 048
     Dates: start: 20030401, end: 20031114
  27. METOCLOPRAMIDE [Concomitant]
     Indication: NAUSEA
     Route: 048
     Dates: start: 20030401, end: 20031114
  28. RILMAZAFONE HYDROCHLORIDE [Concomitant]
     Indication: INSOMNIA
     Route: 048
     Dates: start: 20030401, end: 20040221
  29. PAROXETINE [Concomitant]
     Indication: ANXIETY DISORDER
     Route: 048
     Dates: start: 20030401, end: 20040221
  30. LORMETAZEPAM [Concomitant]
     Indication: ANXIETY DISORDER
     Route: 048
     Dates: start: 20030401
  31. ABACAVIR [Concomitant]
     Indication: HIV INFECTION
     Route: 048
     Dates: start: 20040409
  32. ATAZANAVIR [Concomitant]
     Indication: HIV INFECTION
     Route: 048
     Dates: start: 20040409
  33. AZITHROMYCIN DIHYDRATE [Concomitant]
     Indication: MYCOBACTERIUM AVIUM COMPLEX INFECTION
     Route: 048
     Dates: start: 20040409
  34. NITRAZEPAM [Concomitant]
     Indication: INSOMNIA RELATED TO ANOTHER MENTAL CONDITION
     Route: 048
     Dates: start: 20040427
  35. ANSAMYCIN/MYCOBUTIN [Concomitant]
     Indication: MYCOBACTERIUM AVIUM COMPLEX INFECTION
     Route: 048
     Dates: start: 20040205, end: 20040520

REACTIONS (8)
  - ANOREXIA [None]
  - BLOOD TRIGLYCERIDES INCREASED [None]
  - CONDITION AGGRAVATED [None]
  - GAMMA-GLUTAMYLTRANSFERASE INCREASED [None]
  - HALLUCINATION, AUDITORY [None]
  - MANIA [None]
  - MEMORY IMPAIRMENT [None]
  - NAUSEA [None]
